FAERS Safety Report 13079843 (Version 1)
Quarter: 2017Q1

REPORT INFORMATION
  Report Type: Spontaneous
  Country: US (occurrence: US)
  Receive Date: 20170103
  Receipt Date: 20170103
  Transmission Date: 20170428
  Serious: No
  Sender: FDA-Public Use
  Company Number: US-SHIRE-US201618799

PATIENT

DRUGS (4)
  1. NATPARA (PARATHYROID HORMONE) [Suspect]
     Active Substance: PARATHYROID HORMONE
     Dosage: 75 ?G, UNKNOWN
     Route: 058
  2. NATPARA (PARATHYROID HORMONE) [Suspect]
     Active Substance: PARATHYROID HORMONE
     Dosage: 100 ?G, 1X/DAY:QD
     Route: 058
     Dates: start: 201610
  3. NATPARA (PARATHYROID HORMONE) [Suspect]
     Active Substance: PARATHYROID HORMONE
     Dosage: 50 ?G, UNKNOWN
     Route: 058
  4. NATPARA (PARATHYROID HORMONE) [Suspect]
     Active Substance: PARATHYROID HORMONE
     Indication: HYPOPARATHYROIDISM
     Dosage: 25 ?G, UNKNOWN
     Route: 058
     Dates: start: 201606

REACTIONS (2)
  - Drug ineffective [Not Recovered/Not Resolved]
  - Blood calcium decreased [Not Recovered/Not Resolved]

NARRATIVE: CASE EVENT DATE: 201606
